FAERS Safety Report 9809335 (Version 5)
Quarter: 2014Q2

REPORT INFORMATION
  Report Type: Spontaneous
  Country: US (occurrence: US)
  Receive Date: 20140110
  Receipt Date: 20140409
  Transmission Date: 20141212
  Serious: Yes (Other)
  Sender: FDA-Public Use
  Company Number: US-ASTELLAS-2013US012655

PATIENT
  Age: 55 Year
  Sex: Female

DRUGS (2)
  1. MYRBETRIQ [Suspect]
     Indication: MUSCLE SPASMS
     Dosage: 25 MG, UNKNOWN/D
     Route: 048
     Dates: start: 20131119, end: 201311
  2. VESICARE [Suspect]
     Indication: HYPERTONIC BLADDER
     Dosage: 10 MG, UNKNOWN/D
     Route: 048

REACTIONS (9)
  - Drug ineffective [Unknown]
  - Off label use [Unknown]
  - Bursitis [Not Recovered/Not Resolved]
  - Thrombosis [Recovered/Resolved]
  - Renal cyst [Not Recovered/Not Resolved]
  - Bladder pain [Not Recovered/Not Resolved]
  - Back pain [Not Recovered/Not Resolved]
  - Mouth ulceration [Recovered/Resolved]
  - Pollakiuria [Not Recovered/Not Resolved]
